FAERS Safety Report 14343613 (Version 2)
Quarter: 2018Q1

REPORT INFORMATION
  Report Type: Report from Study
  Country: US (occurrence: US)
  Receive Date: 20180102
  Receipt Date: 20180116
  Transmission Date: 20180509
  Serious: Yes (Hospitalization)
  Sender: FDA-Public Use
  Company Number: US-VERTEX PHARMACEUTICALS-2017-006725

PATIENT
  Age: 17 Year
  Sex: Female

DRUGS (25)
  1. CYPROHEPTADINE. [Concomitant]
     Active Substance: CYPROHEPTADINE
     Dosage: 2 MG VIA GASTRONOMY TUBE, QID
     Dates: start: 20171121
  2. VIOKACE [Concomitant]
     Active Substance: PANCRELIPASE AMYLASE\PANCRELIPASE LIPASE\PANCRELIPASE PROTEASE
     Dosage: ADD 6.5 TABS WITH OVERNIGHT FEEDS, USE 1.5 TAB TID
     Dates: start: 20170927
  3. GABAPENTIN. [Concomitant]
     Active Substance: GABAPENTIN
     Dosage: 300 MG, QD (MORNING)
     Route: 048
     Dates: start: 20171110
  4. MONTELUKAST [Concomitant]
     Active Substance: MONTELUKAST SODIUM
     Dosage: 10 MG, QD AT BED BEDTIME
     Dates: start: 20170821
  5. MIRALAX [Concomitant]
     Active Substance: POLYETHYLENE GLYCOL 3350
     Dosage: 17 GRAM, BID, IN G-TUBE
     Dates: start: 20170504
  6. PREVACID [Concomitant]
     Active Substance: LANSOPRAZOLE
     Dosage: 30 MG, BID, 1/2-1 HOUR BEFORE MEALS
     Route: 048
     Dates: start: 20161206
  7. GLUCOSE [Concomitant]
     Active Substance: DEXTROSE
     Dosage: 1 TAB, PRN, QID IF BLD SUGAR{THAN 70
     Route: 048
     Dates: start: 20160822
  8. ALBUTEROL HFA [Concomitant]
     Active Substance: ALBUTEROL SULFATE
     Dosage: 2 PUFFS BY MOUTH, QID
     Route: 055
     Dates: start: 20171127
  9. NAPROXEN. [Concomitant]
     Active Substance: NAPROXEN
     Indication: PAIN
     Dosage: 15 MILLILITER, BID, PRN
     Route: 048
     Dates: start: 20171108
  10. URSODIOL. [Concomitant]
     Active Substance: URSODIOL
     Dosage: 300 MG, BID
     Route: 048
     Dates: start: 20170317
  11. CREON [Concomitant]
     Active Substance: PANCRELIPASE AMYLASE\PANCRELIPASE LIPASE\PANCRELIPASE PROTEASE
     Dosage: 4 CAPS WITH MEALS, 3 CAPS WITH SNACKS
     Dates: start: 20170302
  12. SALINE                             /00075401/ [Concomitant]
     Active Substance: SODIUM CHLORIDE
     Indication: NASAL DRYNESS
  13. SODIUM CHLORIDE. [Concomitant]
     Active Substance: SODIUM CHLORIDE
     Dosage: 4 MILLILITER, QID
     Route: 055
  14. DORNASE ALFA. [Concomitant]
     Active Substance: DORNASE ALFA
     Dosage: 2.5 MILLILITER, BID
     Route: 055
     Dates: start: 20171222
  15. PHYTONADIONE. [Concomitant]
     Active Substance: PHYTONADIONE
     Dosage: 10 MG, QD
     Route: 048
     Dates: start: 20170810, end: 20170909
  16. NUTREN 1.0 [Concomitant]
     Dosage: 250 MILLILITER, TID
     Dates: start: 20160822
  17. BETHANECHOL [Concomitant]
     Active Substance: BETHANECHOL
     Dosage: 5 MG, TID WITH MEALS
     Route: 048
     Dates: start: 20170729
  18. SERTRALINE [Concomitant]
     Active Substance: SERTRALINE HYDROCHLORIDE
     Dosage: 1 TAB VIA GASTRONOMY TUBE, QD
     Dates: start: 20171220
  19. SALINE                             /00075401/ [Concomitant]
     Active Substance: SODIUM CHLORIDE
     Indication: NASAL DISCOMFORT
     Dosage: 2 SPRAYS IN BOTH NOSTRILS QID, PRN
     Route: 045
     Dates: start: 20160111
  20. FLOVENT HFA [Concomitant]
     Active Substance: FLUTICASONE PROPIONATE
     Dosage: 2 PUFFS BY MOUTH, BID
     Route: 055
     Dates: start: 20171127
  21. ORKAMBI [Suspect]
     Active Substance: IVACAFTOR\LUMACAFTOR
     Indication: CYSTIC FIBROSIS
     Dosage: 2 TABS (200/125MG EACH), BID
     Route: 048
     Dates: start: 20160607
  22. AMITRIPTYLINE [Concomitant]
     Active Substance: AMITRIPTYLINE
     Dosage: 10 MG PLACED IN G-TUBE AT BEDTIME
     Dates: start: 20171109
  23. ACETAMINOPHEN. [Concomitant]
     Active Substance: ACETAMINOPHEN
     Indication: PAIN
     Dosage: 18 MILLILITER, EVERY FOUR HRS., PRN
     Route: 048
     Dates: start: 20171002
  24. VITAMIN D3 [Concomitant]
     Active Substance: CHOLECALCIFEROL
     Dosage: 1 DOSAGE FORM, QW
     Route: 048
     Dates: start: 20170622
  25. INSULIN [Concomitant]
     Active Substance: INSULIN NOS

REACTIONS (2)
  - Sinusitis [Recovered/Resolved]
  - Infective pulmonary exacerbation of cystic fibrosis [Recovered/Resolved]

NARRATIVE: CASE EVENT DATE: 2017
